FAERS Safety Report 8120263-9 (Version None)
Quarter: 2012Q1

REPORT INFORMATION
  Report Type: 
  Country: None (occurrence: None)
  Receive Date: 20120207
  Receipt Date: 20120202
  Transmission Date: 20120608
  Serious: Yes (Other)
  Sender: FDA-Public Use
  Company Number: BR-ABBOTT-11P-020-0725086-00

PATIENT
  Sex: Male
  Weight: 60 kg

DRUGS (4)
  1. DEPAKOTE [Suspect]
  2. DEPAKENE [Suspect]
     Indication: PRODUCT USED FOR UNKNOWN INDICATION
     Dates: start: 20110701
  3. DEPAKOTE [Suspect]
     Indication: CONVULSION
     Dosage: 1 ABOUT 8AM; 1 ABOUT 3PM, 1 ABOUT 8PM
     Route: 048
  4. LAMOTRIGINE [Concomitant]
     Indication: SUPPLEMENTATION THERAPY

REACTIONS (7)
  - FALL [None]
  - CONVULSION [None]
  - RESTLESSNESS [None]
  - BIPOLAR DISORDER [None]
  - HEADACHE [None]
  - TOOTH FRACTURE [None]
  - VOMITING [None]
